FAERS Safety Report 6276129-2 (Version None)
Quarter: 2009Q3

REPORT INFORMATION
  Report Type: 
  Country: None (occurrence: None)
  Receive Date: 20090717
  Receipt Date: 20090717
  Transmission Date: 20100115
  Serious: No
  Sender: FDA-Public Use
  Company Number: None

PATIENT
  Age: 74 Year
  Sex: Female
  Weight: 77.1115 kg

DRUGS (1)
  1. LEVAQUIN [Suspect]
     Indication: BRONCHIECTASIS
     Dosage: 750 MG 1 A DAY
     Dates: start: 20090702, end: 20090705

REACTIONS (5)
  - DISCOMFORT [None]
  - DIZZINESS [None]
  - MUSCULOSKELETAL PAIN [None]
  - PAIN [None]
  - PAIN IN EXTREMITY [None]
